FAERS Safety Report 10726870 (Version 1)
Quarter: 2015Q1

REPORT INFORMATION
  Report Type: Spontaneous
  Country: US (occurrence: US)
  Receive Date: 20150121
  Receipt Date: 20150121
  Transmission Date: 20150721
  Serious: No
  Sender: FDA-Public Use
  Company Number: US-009507513-1412USA008149

PATIENT
  Age: 39 Year
  Sex: Female
  Weight: 86.17 kg

DRUGS (1)
  1. NEXPLANON [Suspect]
     Active Substance: ETONOGESTREL
     Indication: CONTRACEPTION
     Dosage: UNK
     Route: 059
     Dates: start: 20130617, end: 20141121

REACTIONS (3)
  - Pain in extremity [Unknown]
  - Product quality issue [Unknown]
  - Device breakage [Unknown]

NARRATIVE: CASE EVENT DATE: 201409
